FAERS Safety Report 10485086 (Version 1)
Quarter: 2014Q3

REPORT INFORMATION
  Report Type: Spontaneous
  Country: US (occurrence: US)
  Receive Date: 20140930
  Receipt Date: 20140930
  Transmission Date: 20150326
  Serious: No
  Sender: FDA-Public Use
  Company Number: US-MALLINCKRODT-T201402986

PATIENT

DRUGS (1)
  1. METHYLPHENIDATE HYDROCHLORIDE EXTENDED RELEASE TABLETS [Suspect]
     Active Substance: METHYLPHENIDATE HYDROCHLORIDE
     Indication: PRODUCT USED FOR UNKNOWN INDICATION
     Dosage: 36 MG, UNK
     Route: 065

REACTIONS (7)
  - Drug ineffective [Unknown]
  - Headache [Unknown]
  - Psychotic disorder [Unknown]
  - Amnesia [Unknown]
  - Irritability [Unknown]
  - Dizziness [Unknown]
  - Vision blurred [Unknown]
